FAERS Safety Report 10642345 (Version 1)
Quarter: 2014Q4

REPORT INFORMATION
  Report Type: Report from Study
  Country: US (occurrence: US)
  Receive Date: 20141210
  Receipt Date: 20141210
  Transmission Date: 20150529
  Serious: Yes (Hospitalization)
  Sender: FDA-Public Use
  Company Number: US-BIOGENIDEC-2014BI128857

PATIENT
  Age: 65 Year
  Sex: Male

DRUGS (1)
  1. TECFIDERA [Suspect]
     Active Substance: DIMETHYL FUMARATE
     Indication: MULTIPLE SCLEROSIS
     Route: 048
     Dates: start: 201408

REACTIONS (10)
  - Muscular weakness [Unknown]
  - Respiratory acidosis [Unknown]
  - Neck pain [Unknown]
  - Renal failure [Unknown]
  - Diplopia [Recovered/Resolved]
  - Multiple sclerosis [Unknown]
  - Local swelling [Unknown]
  - Motor dysfunction [Unknown]
  - Pain [Unknown]
  - Hypoaesthesia [Unknown]

NARRATIVE: CASE EVENT DATE: 20141001
